FAERS Safety Report 21662783 (Version 2)
Quarter: 2022Q4

REPORT INFORMATION
  Report Type: Report from Study
  Country: AR (occurrence: AR)
  Receive Date: 20221130
  Receipt Date: 20221206
  Transmission Date: 20230113
  Serious: Yes (Other)
  Sender: FDA-Public Use
  Company Number: AR-002147023-NVSC2022AR277544

PATIENT
  Age: 90 Year
  Sex: Male

DRUGS (2)
  1. BROLUCIZUMAB [Suspect]
     Active Substance: BROLUCIZUMAB
     Indication: Neovascular age-related macular degeneration
     Dosage: 6 MG/ 0.05 ML, QMO (IN THE RIGHT EYE)
     Route: 047
     Dates: start: 2020
  2. BROLUCIZUMAB [Suspect]
     Active Substance: BROLUCIZUMAB
     Dosage: 6 MG, Q3W
     Route: 050
     Dates: start: 20210917

REACTIONS (4)
  - Neovascular age-related macular degeneration [Unknown]
  - Visual impairment [Unknown]
  - Eye disorder [Unknown]
  - Anxiety [Unknown]

NARRATIVE: CASE EVENT DATE: 20221124
